FAERS Safety Report 8543519 (Version 3)
Quarter: 2013Q1

REPORT INFORMATION
  Report Type: Spontaneous
  Country: US (occurrence: US)
  Receive Date: 20120503
  Receipt Date: 20130319
  Transmission Date: 20140127
  Serious: Yes (Other)
  Sender: FDA-Public Use
  Company Number: US-BAYER-2012-039699

PATIENT
  Age: 18 Year
  Sex: Female
  Weight: 95 kg

DRUGS (1)
  1. MIRENA [Suspect]
     Indication: CONTRACEPTION
     Dosage: 20 MCG/24HR, CONT
     Route: 015
     Dates: start: 20111014

REACTIONS (4)
  - Pregnancy with contraceptive device [Recovered/Resolved]
  - Device dislocation [Not Recovered/Not Resolved]
  - Pain [None]
  - Drug ineffective [None]
